FAERS Safety Report 8061330-8 (Version None)
Quarter: 2012Q1

REPORT INFORMATION
  Report Type: 
  Country: None (occurrence: None)
  Receive Date: 20120120
  Receipt Date: 20110921
  Transmission Date: 20120608
  Serious: No
  Sender: FDA-Public Use
  Company Number: US-ALLERGAN-1112565US

PATIENT
  Age: 72 Year
  Sex: Male

DRUGS (3)
  1. OPTIVE [Concomitant]
     Indication: EYE LUBRICATION THERAPY
     Dosage: DROPS
     Route: 047
  2. SYSTANE [Concomitant]
     Indication: EYE LUBRICATION THERAPY
     Dosage: DROPS
     Route: 047
  3. RESTASIS [Suspect]
     Indication: CORNEAL ABRASION
     Dosage: 1 GTT, BID
     Route: 047
     Dates: start: 20110920

REACTIONS (3)
  - LACRIMATION INCREASED [None]
  - EXCESSIVE EYE BLINKING [None]
  - VISION BLURRED [None]
